FAERS Safety Report 7000500-4 (Version None)
Quarter: 2010Q3

REPORT INFORMATION
  Report Type: 
  Country: None (occurrence: None)
  Receive Date: 20100920
  Receipt Date: 20070607
  Transmission Date: 20110219
  Serious: Yes (Hospitalization)
  Sender: FDA-Public Use
  Company Number: US-ASTRAZENECA-2006UW26439

PATIENT
  Age: 14436 Day
  Sex: Male
  Weight: 120 kg

DRUGS (5)
  1. SEROQUEL [Suspect]
     Indication: SCHIZOPHRENIA
     Dosage: 25 MG -150 MG
     Route: 048
     Dates: start: 20010405
  2. SEROQUEL [Suspect]
     Indication: BIPOLAR DISORDER
     Dosage: 25 MG -150 MG
     Route: 048
     Dates: start: 20010405
  3. GEODON [Concomitant]
  4. COZAAR [Concomitant]
     Dates: start: 20020810
  5. PROLIXIN D [Concomitant]
     Route: 030
     Dates: start: 20020101

REACTIONS (2)
  - DIABETES MELLITUS [None]
  - DIABETES MELLITUS INADEQUATE CONTROL [None]
